FAERS Safety Report 14754000 (Version 5)
Quarter: 2018Q3

REPORT INFORMATION
  Report Type: Report from Study
  Country: US (occurrence: US)
  Receive Date: 20180412
  Receipt Date: 20180921
  Transmission Date: 20181010
  Serious: Yes (Hospitalization, Disabling, Other)
  Sender: FDA-Public Use
  Company Number: US-ACTELION-A-US2016-132009

PATIENT
  Age: 61 Year
  Sex: Female

DRUGS (21)
  1. CANNABIDIOL [Concomitant]
     Active Substance: CANNABIDIOL
     Dosage: 1 QD
  2. GUAIFENESIN. [Concomitant]
     Active Substance: GUAIFENESIN
  3. ONDANSETRON [Concomitant]
     Active Substance: ONDANSETRON
  4. CARBOPLATIN. [Concomitant]
     Active Substance: CARBOPLATIN
  5. DOXORUBICIN [Concomitant]
     Active Substance: DOXORUBICIN
  6. OPSUMIT [Suspect]
     Active Substance: MACITENTAN
     Dosage: UNK
     Route: 048
     Dates: start: 20140403
  7. ADCIRCA [Concomitant]
     Active Substance: TADALAFIL
     Dosage: 20 MG, UNK
  8. OFLOXACIN. [Concomitant]
     Active Substance: OFLOXACIN
  9. SPIRIVA [Concomitant]
     Active Substance: TIOTROPIUM BROMIDE MONOHYDRATE
     Dosage: 18 MCG, UNK
  10. CITRACAL + D [Concomitant]
     Active Substance: CALCIUM CITRATE\VITAMIN D
     Dosage: 250?200 MCG?UNIT
  11. PACLITAXEL. [Concomitant]
     Active Substance: PACLITAXEL
  12. DEXAMETHASONE. [Concomitant]
     Active Substance: DEXAMETHASONE
  13. DIPHENHYDRAMINE. [Concomitant]
     Active Substance: DIPHENHYDRAMINE
  14. FENTANYL. [Concomitant]
     Active Substance: FENTANYL
  15. BUPROPION. [Concomitant]
     Active Substance: BUPROPION
  16. ANORO ELLIPTA [Concomitant]
     Active Substance: UMECLIDINIUM BROMIDE\VILANTEROL TRIFENATATE
     Indication: DYSPNOEA
     Dosage: UNK
     Dates: start: 20180222
  17. OPSUMIT [Suspect]
     Active Substance: MACITENTAN
     Indication: PULMONARY ARTERIAL HYPERTENSION
     Dosage: 10 MG, QD
     Route: 048
     Dates: start: 20160118
  18. VITAMIN D3 [Concomitant]
     Active Substance: CHOLECALCIFEROL
     Dosage: 5000 U, UNK
  19. AMOXICILLIN AND CLAVULA. POTASSIUM [Concomitant]
     Active Substance: AMOXICILLIN\CLAVULANATE POTASSIUM
     Dosage: UNK, BID
  20. PREDNISONE ACETATE [Concomitant]
     Active Substance: PREDNISONE ACETATE
  21. FAMOTIDINE. [Concomitant]
     Active Substance: FAMOTIDINE

REACTIONS (21)
  - Arthropod bite [Recovered/Resolved]
  - Pyrexia [Recovered/Resolved]
  - Breast cancer stage III [Unknown]
  - Skin swelling [Recovered/Resolved]
  - Arthralgia [Recovered/Resolved]
  - Oropharyngeal pain [Not Recovered/Not Resolved]
  - Constipation [Not Recovered/Not Resolved]
  - Radical mastectomy [Unknown]
  - Chills [Recovered/Resolved]
  - Infection [Recovering/Resolving]
  - Malaise [Recovered/Resolved]
  - Fatigue [Recovered/Resolved]
  - Cough [Recovered/Resolved]
  - Nasal congestion [Not Recovered/Not Resolved]
  - Nodule [Not Recovered/Not Resolved]
  - Ear canal stenosis [Recovering/Resolving]
  - Cataract [Recovering/Resolving]
  - Dyspnoea [Unknown]
  - Epistaxis [Unknown]
  - Depression [Not Recovered/Not Resolved]
  - Haemoglobin decreased [Unknown]

NARRATIVE: CASE EVENT DATE: 20160201
